FAERS Safety Report 8001849 (Version 4)
Quarter: 2012Q4

REPORT INFORMATION
  Report Type: Spontaneous
  Country: US (occurrence: None)
  Receive Date: 20110607
  Receipt Date: 20121012
  Transmission Date: 20130627
  Serious: Yes (Other)
  Sender: FDA-Public Use
  Company Number: HA11-128-AE

PATIENT
  Age: 68 Year
  Sex: Female
  Weight: 61 kg

DRUGS (16)
  1. NAPROXEN [Suspect]
     Indication: OSTEOARTHRITIS
     Dosage: HIGH DOSE, 3X/DAY, ORAL
     Route: 048
     Dates: start: 20091124, end: 20110508
  2. NAPROXEN [Suspect]
     Indication: RHEUMATOID ARTHRITIS
     Dosage: HIGH DOSE, 3X/DAY, ORAL
     Route: 048
     Dates: start: 20091124, end: 20110508
  3. CELECOXIB\IBUPROFEN\NAPROXEN\PLACEBO [Suspect]
     Indication: OSTEOARTHRITIS
     Dosage: HIGH DOSE, 3X/DAY, ORAL
     Route: 048
     Dates: start: 20091124, end: 20101128
  4. CELECOXIB\IBUPROFEN\NAPROXEN\PLACEBO [Suspect]
     Indication: RHEUMATOID ARTHRITIS
     Dosage: HIGH DOSE, 3X/DAY, ORAL
     Route: 048
     Dates: start: 20091124, end: 20101128
  5. NEXIUM 40 MG (ESOMEPRAZOLE) [Concomitant]
  6. METFORMIN HYDROCHLORIDE [Concomitant]
  7. ACARBOSE TABLET [Concomitant]
  8. GLICLAZIDE TABLET [Concomitant]
  9. ATORVASTATIN TABLET [Concomitant]
  10. ASPIRIN [Concomitant]
  11. CALCIUM CARBONATE TABLETS [Concomitant]
  12. LEVOTHYROXINE  SODIUM (PURAN T4) TABLET [Concomitant]
  13. CYCLOBENZAPRINE TABLET [Concomitant]
  14. CODEINE TABLET [Concomitant]
  15. PARACETAMOL TABLET [Concomitant]
  16. ADITIL [Concomitant]

REACTIONS (5)
  - Gastric polyps [None]
  - Gastritis [None]
  - Neuroendocrine tumour [None]
  - Arthralgia [None]
  - Carcinoid tumour of the stomach [None]
